FAERS Safety Report 5806286-0 (Version None)
Quarter: 2008Q3

REPORT INFORMATION
  Report Type: 
  Country: None (occurrence: None)
  Receive Date: 20080710
  Receipt Date: 20080707
  Transmission Date: 20090109
  Serious: Yes (Death, Hospitalization, Other)
  Sender: FDA-Public Use
  Company Number: US-BAXTER-2008BH007116

PATIENT
  Sex: Male

DRUGS (1)
  1. HEPARIN SODIUM INJECTION [Suspect]
     Indication: THROMBOSIS PROPHYLAXIS
     Dosage: DOSE UNIT:UNKNOWN
     Route: 065
     Dates: start: 20070906

REACTIONS (6)
  - ABDOMINAL PAIN UPPER [None]
  - BACTERAEMIA [None]
  - DYSPNOEA [None]
  - NAUSEA [None]
  - SEPSIS [None]
  - UNRESPONSIVE TO STIMULI [None]
